FAERS Safety Report 7343844-9 (Version None)
Quarter: 2011Q1

REPORT INFORMATION
  Report Type: 
  Country: None (occurrence: None)
  Receive Date: 20110310
  Receipt Date: 20110303
  Transmission Date: 20110831
  Serious: Yes (Hospitalization)
  Sender: FDA-Public Use
  Company Number: JP-ROCHE-748585

PATIENT
  Sex: Male
  Weight: 46 kg

DRUGS (12)
  1. GEMCITABINE HYDROCHLORIDE [Concomitant]
     Route: 041
     Dates: start: 20101220, end: 20101220
  2. GEMCITABINE HYDROCHLORIDE [Concomitant]
     Route: 041
     Dates: start: 20110120, end: 20110120
  3. GEMCITABINE HYDROCHLORIDE [Concomitant]
     Route: 041
     Dates: start: 20110113, end: 20110113
  4. GEMCITABINE HYDROCHLORIDE [Concomitant]
     Route: 041
     Dates: start: 20101118, end: 20101118
  5. AVASTIN [Suspect]
     Indication: NON-SMALL CELL LUNG CANCER
     Route: 041
     Dates: start: 20101013, end: 20101013
  6. GEMCITABINE HYDROCHLORIDE [Concomitant]
     Route: 041
     Dates: start: 20101013, end: 20101013
  7. GEMCITABINE HYDROCHLORIDE [Concomitant]
     Route: 041
     Dates: start: 20101111, end: 20101111
  8. GEMCITABINE HYDROCHLORIDE [Concomitant]
     Route: 041
     Dates: start: 20101227, end: 20101227
  9. AVASTIN [Suspect]
     Route: 041
     Dates: start: 20101111, end: 20101111
  10. OPIUM [Suspect]
     Indication: PAIN
     Dosage: DOSAGE IS UNCERTAIN.
     Route: 065
  11. GEMCITABINE HYDROCHLORIDE [Concomitant]
     Route: 041
     Dates: start: 20101020, end: 20101020
  12. GEMCITABINE HYDROCHLORIDE [Concomitant]
     Route: 041
     Dates: start: 20110203, end: 20110203

REACTIONS (1)
  - DECUBITUS ULCER [None]
